FAERS Safety Report 12624995 (Version 2)
Quarter: 2016Q3

REPORT INFORMATION
  Report Type: Spontaneous
  Country: JP (occurrence: JP)
  Receive Date: 20160805
  Receipt Date: 20160915
  Transmission Date: 20161109
  Serious: Yes (Other)
  Sender: FDA-Public Use
  Company Number: JP-SUN PHARMACEUTICAL INDUSTRIES LTD-2016RR-121450

PATIENT
  Age: 73 Year
  Sex: Female

DRUGS (2)
  1. PACLITAXEL. [Suspect]
     Active Substance: PACLITAXEL
     Indication: FALLOPIAN TUBE CANCER STAGE III
     Dosage: 6 CYCLES, WITH 1 CYCLE EVERY 3 WEEKS
     Route: 042
  2. CARBOPLATIN. [Suspect]
     Active Substance: CARBOPLATIN
     Indication: FALLOPIAN TUBE CANCER STAGE III
     Dosage: 6 CYCLES, WITH 1 CYCLE EVERY 3 WEEKS, AUC: 5 MG/MIN/ML
     Route: 042

REACTIONS (2)
  - Neutropenia [Unknown]
  - Leukopenia [Unknown]
